FAERS Safety Report 13144580 (Version 2)
Quarter: 2017Q1

REPORT INFORMATION
  Report Type: Spontaneous
  Country: JP (occurrence: JP)
  Receive Date: 20170124
  Receipt Date: 20170228
  Transmission Date: 20170428
  Serious: Yes (Death)
  Sender: FDA-Public Use
  Company Number: JP-SA-2017SA010878

PATIENT
  Sex: Male

DRUGS (1)
  1. ONETAXOTERE [Suspect]
     Active Substance: DOCETAXEL
     Indication: PROSTATE CANCER
     Route: 042

REACTIONS (1)
  - Cardiac failure acute [Fatal]
